FAERS Safety Report 24585857 (Version 3)
Quarter: 2025Q3

REPORT INFORMATION
  Report Type: Report from Study
  Country: US (occurrence: US)
  Receive Date: 20241106
  Receipt Date: 20250809
  Transmission Date: 20251021
  Serious: Yes (Other)
  Sender: ALEXION PHARMACEUTICALS
  Company Number: US-AstraZeneca-CH-00738232A

PATIENT
  Sex: Female

DRUGS (4)
  1. TEZEPELUMAB [Suspect]
     Active Substance: TEZEPELUMAB
     Indication: Asthma
     Dosage: 210 MILLIGRAM, Q4W
     Route: 065
  2. TEZEPELUMAB [Suspect]
     Active Substance: TEZEPELUMAB
  3. CRESEMBA [Concomitant]
     Active Substance: ISAVUCONAZONIUM SULFATE
     Route: 065
  4. TIROSINT [Concomitant]
     Active Substance: LEVOTHYROXINE SODIUM
     Route: 065

REACTIONS (4)
  - Lung neoplasm malignant [Unknown]
  - Pneumonia [Unknown]
  - Illness [Unknown]
  - Memory impairment [Unknown]
